FAERS Safety Report 14499269 (Version 1)
Quarter: 2018Q1

REPORT INFORMATION
  Report Type: Spontaneous
  Country: US (occurrence: US)
  Receive Date: 20180207
  Receipt Date: 20180207
  Transmission Date: 20180509
  Serious: No
  Sender: FDA-Public Use
  Company Number: US-JAZZ-2017-US-013985

PATIENT
  Sex: Female

DRUGS (6)
  1. MORPHINE [Suspect]
     Active Substance: MORPHINE
     Indication: PRODUCT USED FOR UNKNOWN INDICATION
     Dosage: 0.394 MG, QH
     Route: 037
     Dates: start: 20160712
  2. CLONIDINE. [Suspect]
     Active Substance: CLONIDINE
     Dosage: 11.39 ?G, QH
     Route: 037
     Dates: start: 20160902
  3. MORPHINE [Suspect]
     Active Substance: MORPHINE
     Dosage: 0.356 MG, QH
     Route: 037
     Dates: start: 20160902
  4. CLONIDINE. [Suspect]
     Active Substance: CLONIDINE
     Indication: PRODUCT USED FOR UNKNOWN INDICATION
     Dosage: 12.58 ?G, QH
     Route: 037
     Dates: start: 20160712
  5. PRIALT [Suspect]
     Active Substance: ZICONOTIDE ACETATE
     Dosage: 0.198 ?G, QH
     Route: 037
     Dates: start: 20160902
  6. PRIALT [Suspect]
     Active Substance: ZICONOTIDE ACETATE
     Indication: PRODUCT USED FOR UNKNOWN INDICATION
     Dosage: 0.218 ?G, QH
     Route: 037
     Dates: start: 20160712

REACTIONS (1)
  - Somnolence [Recovered/Resolved]
